FAERS Safety Report 12233834 (Version 1)
Quarter: 2016Q2

REPORT INFORMATION
  Report Type: Spontaneous
  Country: US (occurrence: US)
  Receive Date: 20160404
  Receipt Date: 20160404
  Transmission Date: 20160815
  Serious: Yes (Other)
  Sender: FDA-Public Use
  Company Number: US-UNITED THERAPEUTICS-UNT-2016-000695

PATIENT
  Age: 8 Year
  Sex: Male

DRUGS (2)
  1. INTERLEUKIN-2 [Suspect]
     Active Substance: ALDESLEUKIN
     Indication: NEUROBLASTOMA
  2. UNITUXIN [Suspect]
     Active Substance: DINUTUXIMAB
     Indication: NEUROBLASTOMA
     Dosage: UNK
     Route: 041

REACTIONS (2)
  - Urticaria [Unknown]
  - Stridor [Unknown]

NARRATIVE: CASE EVENT DATE: 201601
